FAERS Safety Report 4673475-0 (Version None)
Quarter: 2005Q2

REPORT INFORMATION
  Report Type: 
  Country: None (occurrence: None)
  Receive Date: 20050525
  Receipt Date: 20050224
  Transmission Date: 20051028
  Serious: No
  Sender: FDA-Public Use
  Company Number: US-GLAXOSMITHKLINE-A0547169A

PATIENT
  Age: 40 Year
  Sex: Male

DRUGS (6)
  1. EPZICOM [Suspect]
     Indication: HIV INFECTION
     Dosage: 1TAB PER DAY
     Route: 048
     Dates: start: 20050120, end: 20050224
  2. NORVIR [Concomitant]
  3. ATAZANAVIR [Concomitant]
  4. OXYCONTIN [Concomitant]
  5. XANAX [Concomitant]
  6. VALIUM [Concomitant]

REACTIONS (6)
  - ABDOMINAL PAIN [None]
  - DYSPNOEA [None]
  - MALAISE [None]
  - NAUSEA [None]
  - PHARYNGITIS [None]
  - PYREXIA [None]
